FAERS Safety Report 21371844 (Version 1)
Quarter: 2022Q3

REPORT INFORMATION
  Report Type: Spontaneous
  Country: CN (occurrence: CN)
  Receive Date: 20220923
  Receipt Date: 20220923
  Transmission Date: 20221027
  Serious: Yes (Hospitalization)
  Sender: FDA-Public Use
  Company Number: CN-ELI_LILLY_AND_COMPANY-CN202209004397

PATIENT
  Age: 40 Year
  Sex: Female

DRUGS (17)
  1. TADALAFIL [Suspect]
     Active Substance: TADALAFIL
     Indication: Pulmonary hypertension
     Dosage: 10 MG, DAILY
     Route: 065
     Dates: start: 201609
  2. TADALAFIL [Suspect]
     Active Substance: TADALAFIL
     Dosage: 20 MG, DAILY
     Route: 065
     Dates: start: 20171130
  3. TADALAFIL [Suspect]
     Active Substance: TADALAFIL
     Dosage: 30 MG, DAILY
     Route: 065
     Dates: start: 20190521
  4. REMODULIN [Suspect]
     Active Substance: TREPROSTINIL
     Indication: Product used for unknown indication
     Dosage: UNK, UNKNOWN
     Route: 058
     Dates: start: 201807, end: 201808
  5. AMBRISENTAN [Concomitant]
     Active Substance: AMBRISENTAN
     Indication: Pulmonary hypertension
     Dosage: 10 MG, UNKNOWN
     Dates: start: 2017
  6. AMBRISENTAN [Concomitant]
     Active Substance: AMBRISENTAN
     Dosage: 5 MG, DAILY
  7. AMBRISENTAN [Concomitant]
     Active Substance: AMBRISENTAN
     Dosage: 10 MG, DAILY
     Dates: start: 201807
  8. AMBRISENTAN [Concomitant]
     Active Substance: AMBRISENTAN
     Dosage: 10 MG, DAILY
     Route: 065
     Dates: start: 2019
  9. AMBRISENTAN [Concomitant]
     Active Substance: AMBRISENTAN
     Dosage: 5 MG,  TABLET EACH NIGHT
     Route: 065
     Dates: start: 20220529
  10. AMBRISENTAN [Concomitant]
     Active Substance: AMBRISENTAN
     Dosage: 10 MG, DAILY
  11. RALINEPAG [Concomitant]
     Active Substance: RALINEPAG
     Indication: Pulmonary hypertension
     Dosage: 150 MG, DAILY
     Route: 048
     Dates: start: 2019
  12. RALINEPAG [Concomitant]
     Active Substance: RALINEPAG
     Dosage: 250 MG, DAILY
     Route: 048
     Dates: start: 2019
  13. RALINEPAG [Concomitant]
     Active Substance: RALINEPAG
     Dosage: 50 MG, DAILY
     Route: 048
  14. MACITENTAN [Concomitant]
     Active Substance: MACITENTAN
     Indication: Pulmonary hypertension
     Dosage: 10 MG, DAILY
     Route: 065
  15. MIRTAZAPINE [Concomitant]
     Active Substance: MIRTAZAPINE
     Indication: Product used for unknown indication
     Dosage: 15 MG, ONCE EVERY NIGHT
     Route: 048
  16. BOSENTAN [Concomitant]
     Active Substance: BOSENTAN
     Indication: Pulmonary hypertension
     Dosage: 62.5 MG, BID
     Route: 065
     Dates: start: 201609, end: 2017
  17. BOSENTAN [Concomitant]
     Active Substance: BOSENTAN
     Dosage: 125 MG, BID
     Route: 065
     Dates: start: 201609, end: 2017

REACTIONS (9)
  - Pulmonary arterial hypertension [Unknown]
  - Cardiac dysfunction [Recovering/Resolving]
  - Right ventricular hypertrophy [Unknown]
  - Cardiomegaly [Unknown]
  - Tricuspid valve incompetence [Unknown]
  - Iron metabolism disorder [Unknown]
  - Hypocalcaemia [Unknown]
  - Panic disorder [Unknown]
  - Product use in unapproved indication [Unknown]

NARRATIVE: CASE EVENT DATE: 20160901
